FAERS Safety Report 8804130 (Version 3)
Quarter: 2013Q1

REPORT INFORMATION
  Report Type: Spontaneous
  Country: JP (occurrence: JP)
  Receive Date: 20120924
  Receipt Date: 20130102
  Transmission Date: 20140127
  Serious: Yes (Hospitalization)
  Sender: FDA-Public Use
  Company Number: JP-ASTRAZENECA-2012SE72611

PATIENT
  Sex: Female

DRUGS (2)
  1. FASLODEX [Suspect]
     Indication: BREAST CANCER
     Route: 030
  2. DECADRON [Concomitant]
     Indication: RENAL IMPAIRMENT
     Route: 065

REACTIONS (2)
  - Oedema [Not Recovered/Not Resolved]
  - Genital haemorrhage [Recovered/Resolved]
